FAERS Safety Report 20580419 (Version 1)
Quarter: 2022Q1

REPORT INFORMATION
  Report Type: Spontaneous
  Country: US (occurrence: US)
  Receive Date: 20220311
  Receipt Date: 20220311
  Transmission Date: 20220423
  Serious: Yes (Life-Threatening, Hospitalization)
  Sender: FDA-Public Use
  Company Number: US-STRIDES ARCOLAB LIMITED-2022SP000547

PATIENT
  Age: 15 Year
  Sex: Male

DRUGS (4)
  1. PREDNISOLONE [Suspect]
     Active Substance: PREDNISOLONE
     Indication: Infectious mononucleosis
     Dosage: UNK, ADMINISTERED FOR 10 DAYS
     Route: 065
  2. PREDNISOLONE [Suspect]
     Active Substance: PREDNISOLONE
     Dosage: 60 MILLIGRAM PER DAY, ADMINISTERED FOR 5 DAYS
     Route: 065
  3. PREDNISOLONE [Suspect]
     Active Substance: PREDNISOLONE
     Dosage: 40 MILLIGRAM PER DAY, ADMINISTERED FOR 2 DAYS
     Route: 065
  4. PREDNISOLONE [Suspect]
     Active Substance: PREDNISOLONE
     Dosage: 20 MILLIGRAM PER DAY
     Route: 065

REACTIONS (11)
  - Pneumonia [Unknown]
  - Septic pulmonary embolism [Unknown]
  - Septic shock [Unknown]
  - Extradural abscess [Recovered/Resolved]
  - Pleural effusion [Unknown]
  - Sinusitis [Unknown]
  - Streptococcal bacteraemia [Unknown]
  - Fusobacterium infection [Unknown]
  - Cellulitis orbital [Unknown]
  - Osteomyelitis [Recovered/Resolved]
  - Empyema [Unknown]
